FAERS Safety Report 5777712-0 (Version None)
Quarter: 2008Q2

REPORT INFORMATION
  Report Type: 
  Country: None (occurrence: None)
  Receive Date: 20080618
  Receipt Date: 20080606
  Transmission Date: 20081010
  Serious: Yes (Hospitalization)
  Sender: FDA-Public Use
  Company Number: BB-BOEHRINGER INGELHEIM GMBH, GERMANY-2008-CN-00248CN

PATIENT
  Sex: Male

DRUGS (1)
  1. FLOMAX [Suspect]
     Indication: BENIGN PROSTATIC HYPERPLASIA

REACTIONS (3)
  - BLOOD PRESSURE DECREASED [None]
  - SEPSIS [None]
  - URINARY RETENTION [None]
